FAERS Safety Report 9061404 (Version 1)
Quarter: 2013Q1

REPORT INFORMATION
  Report Type: Spontaneous
  Country: FR (occurrence: FR)
  Receive Date: 20130204
  Receipt Date: 20130204
  Transmission Date: 20140127
  Serious: Yes (Other)
  Sender: FDA-Public Use
  Company Number: FR-JNJFOC-20130114133

PATIENT
  Age: 54 Year
  Sex: Female

DRUGS (1)
  1. XARELTO [Suspect]
     Indication: VENOUS THROMBOSIS
     Route: 048
     Dates: start: 201212

REACTIONS (1)
  - Tendon rupture [Unknown]
